FAERS Safety Report 8599283-6 (Version None)
Quarter: 2012Q3

REPORT INFORMATION
  Report Type: 
  Country: None (occurrence: None)
  Receive Date: 20120816
  Receipt Date: 20120803
  Transmission Date: 20120928
  Serious: No
  Sender: FDA-Public Use
  Company Number: US-AMGEN-USASP2012046018

PATIENT
  Age: 78 Year
  Sex: Male
  Weight: 99.773 kg

DRUGS (10)
  1. VANCOMYCIN [Concomitant]
     Dosage: 250 MG, Q6H
     Route: 048
  2. TRIAMTERENE [Concomitant]
     Dosage: 50 MG, PRN
  3. SYNTHROID [Concomitant]
     Dosage: 150 MU, UNK
     Route: 048
  4. VANCOMYCIN [Concomitant]
     Dosage: UNK UNK, Q6H
  5. NORCO [Concomitant]
     Dosage: UNK
  6. ARANESP [Suspect]
     Indication: ANAEMIA
     Dosage: 200 MG, Q2WK
     Route: 058
  7. CEFEPIME [Concomitant]
     Dosage: 2 UNK, UNK
     Route: 042
  8. NEUPOGEN [Suspect]
     Indication: NEUTROPENIA
     Dosage: 480 MUG, UNK
     Route: 058
     Dates: start: 20120718
  9. QUESTRAN [Concomitant]
     Dosage: 4 G, BID
     Route: 048
  10. FLORINEF [Concomitant]
     Dosage: UNK

REACTIONS (1)
  - EOSINOPHIL COUNT INCREASED [None]
